FAERS Safety Report 26000101 (Version 1)
Quarter: 2025Q4

REPORT INFORMATION
  Report Type: Spontaneous
  Country: US (occurrence: US)
  Receive Date: 20251105
  Receipt Date: 20251105
  Transmission Date: 20260118
  Serious: No
  Sender: CURRAX PHARMACEUTICALS
  Company Number: US-CURRAX PHARMACEUTICALS LLC-US-2025CUR000759

PATIENT

DRUGS (1)
  1. CONTRAVE [Suspect]
     Active Substance: BUPROPION HYDROCHLORIDE\NALTREXONE HYDROCHLORIDE
     Indication: Product used for unknown indication
     Dosage: STRENGTH 8/90 MG UNKNOWN DOSE AND FREQUENCY
     Route: 065
     Dates: start: 2025

REACTIONS (3)
  - Fall [Unknown]
  - Aphasia [Unknown]
  - Balance disorder [Unknown]

NARRATIVE: CASE EVENT DATE: 20250101
